FAERS Safety Report 7382896-7 (Version None)
Quarter: 2011Q1

REPORT INFORMATION
  Report Type: 
  Country: None (occurrence: None)
  Receive Date: 20110330
  Receipt Date: 20110304
  Transmission Date: 20110831
  Serious: Yes (Hospitalization, Other)
  Sender: FDA-Public Use
  Company Number: US-BAYER-201036558NA

PATIENT
  Sex: Female
  Weight: 74.83 kg

DRUGS (7)
  1. YAZ [Suspect]
     Indication: GENITAL HAEMORRHAGE
  2. SERTRALINE [Concomitant]
     Indication: DEPRESSION
     Dosage: UNK
     Dates: start: 20080101
  3. ZYRTEC [Concomitant]
     Dosage: UNK
     Dates: start: 20080101
  4. AMOXICILLIN [Concomitant]
     Dosage: UNK
     Dates: start: 20080828
  5. YAZ [Suspect]
     Indication: ORAL CONTRACEPTION
     Dosage: UNK
     Route: 048
     Dates: start: 20071201, end: 20081001
  6. AZITHROMYCIN [Concomitant]
     Dosage: UNK
     Dates: start: 20080724
  7. ALAVERT [Concomitant]
     Dosage: UNK
     Dates: start: 20080101

REACTIONS (3)
  - DEEP VEIN THROMBOSIS [None]
  - PULMONARY EMBOLISM [None]
  - PAIN IN EXTREMITY [None]
